FAERS Safety Report 24294055 (Version 1)
Quarter: 2024Q3

REPORT INFORMATION
  Report Type: Spontaneous
  Country: US (occurrence: None)
  Receive Date: 20240906
  Receipt Date: 20240906
  Transmission Date: 20241017
  Serious: No
  Sender: DOMPE FARMACEUTICI
  Company Number: US-FARMAPROD-202404-1172

PATIENT
  Sex: Female

DRUGS (8)
  1. OXERVATE [Suspect]
     Active Substance: CENEGERMIN-BKBJ
     Indication: Neurotrophic keratopathy
     Route: 047
     Dates: start: 20240322
  2. OXERVATE [Suspect]
     Active Substance: CENEGERMIN-BKBJ
  3. TYRVAYA [Concomitant]
     Active Substance: VARENICLINE TARTRATE
     Dosage: 0.03/SPRAY
  4. VITAMINS [Concomitant]
     Active Substance: VITAMINS
  5. LEVOTHYROXINE SODIUM [Concomitant]
     Active Substance: LEVOTHYROXINE SODIUM
  6. NAPROXEN [Concomitant]
     Active Substance: NAPROXEN
  7. METHOTREXATE [Concomitant]
     Active Substance: METHOTREXATE
     Dosage: VIAL
  8. HUMIRA(CF) [Concomitant]
     Dosage: 20MG/0.2ML SYRINGE KIT

REACTIONS (2)
  - Eye pain [Unknown]
  - Wrong technique in product usage process [Unknown]
